FAERS Safety Report 5960366-8 (Version None)
Quarter: 2008Q4

REPORT INFORMATION
  Report Type: 
  Country: None (occurrence: None)
  Receive Date: 20081120
  Receipt Date: 20081113
  Transmission Date: 20090506
  Serious: Yes (Hospitalization)
  Sender: FDA-Public Use
  Company Number: GB-ROCHE-597365

PATIENT
  Sex: Female

DRUGS (6)
  1. ORLISTAT [Suspect]
     Indication: OBESITY
     Route: 048
     Dates: start: 20080603
  2. BECOTIDE [Concomitant]
     Indication: ASTHMA
  3. VENTOLIN [Concomitant]
     Indication: ASTHMA
  4. ATROVENT [Concomitant]
     Indication: ASTHMA
     Dosage: REPORTED AS ATOROVENT
  5. FERROUS SULFATE TAB [Concomitant]
     Indication: IRON DEFICIENCY
     Dosage: DOSE UNKNOWN
     Route: 048
  6. FUROSEMIDE [Concomitant]
     Route: 048

REACTIONS (1)
  - NEOPLASM RECURRENCE [None]
